FAERS Safety Report 15010402 (Version 1)
Quarter: 2018Q2

REPORT INFORMATION
  Report Type: Spontaneous
  Country: GB (occurrence: GB)
  Receive Date: 20180614
  Receipt Date: 20180614
  Transmission Date: 20180711
  Serious: Yes (Other)
  Sender: FDA-Public Use
  Company Number: PHHY2018GB021317

PATIENT
  Age: 28 Year
  Sex: Female
  Weight: 60 kg

DRUGS (6)
  1. LEVETIRACETAM. [Suspect]
     Active Substance: LEVETIRACETAM
     Indication: MIGRAINE
     Dosage: 250 MG, QD (AT NIGHT)
     Route: 048
     Dates: start: 20180228
  2. LEVETIRACETAM. [Suspect]
     Active Substance: LEVETIRACETAM
     Dosage: 500 MG, QD (250MG MORNING AND NIGHT)
     Route: 048
     Dates: start: 20180309, end: 20180315
  3. PETADOLEX [Concomitant]
     Indication: MIGRAINE
     Dosage: UNK
     Route: 065
  4. CILEST [Concomitant]
     Active Substance: ETHINYL ESTRADIOL\NORGESTIMATE
     Indication: PRODUCT USED FOR UNKNOWN INDICATION
     Dosage: UNK
     Route: 065
  5. ESOMEPRAZOLE MAGNESIUM. [Concomitant]
     Active Substance: ESOMEPRAZOLE MAGNESIUM
     Indication: PRODUCT USED FOR UNKNOWN INDICATION
     Dosage: UNK
     Route: 065
  6. LIZINNA [Concomitant]
     Indication: PRODUCT USED FOR UNKNOWN INDICATION
     Dosage: UNK
     Route: 065

REACTIONS (12)
  - Condition aggravated [Unknown]
  - Somnolence [Unknown]
  - Dizziness [Unknown]
  - Mood swings [Unknown]
  - Restless legs syndrome [Recovered/Resolved]
  - Suicidal ideation [Unknown]
  - Oropharyngeal pain [Unknown]
  - Joint laxity [Unknown]
  - Muscular weakness [Unknown]
  - Hypermobility syndrome [Unknown]
  - Feeling drunk [Unknown]
  - Anger [Unknown]

NARRATIVE: CASE EVENT DATE: 20180228
